FAERS Safety Report 19225621 (Version 1)
Quarter: 2021Q2

REPORT INFORMATION
  Report Type: Spontaneous
  Country: IN (occurrence: IN)
  Receive Date: 20210506
  Receipt Date: 20210506
  Transmission Date: 20210717
  Serious: Yes (Death)
  Sender: FDA-Public Use
  Company Number: IN-PFIZER INC-2020330302

PATIENT
  Age: 58 Year
  Sex: Female

DRUGS (1)
  1. PALBACE [Suspect]
     Active Substance: PALBOCICLIB
     Indication: BREAST CANCER METASTATIC
     Dosage: 125 MG, 1X/DAY
     Route: 048
     Dates: start: 20200825, end: 20210331

REACTIONS (6)
  - Haemoglobin decreased [Unknown]
  - Blood albumin increased [Unknown]
  - Multiple organ dysfunction syndrome [Fatal]
  - Hepatic cirrhosis [Fatal]
  - Blood bilirubin increased [Unknown]
  - Blood calcium decreased [Unknown]

NARRATIVE: CASE EVENT DATE: 20201008
